FAERS Safety Report 9958650 (Version 3)
Quarter: 2014Q3

REPORT INFORMATION
  Report Type: Report from Study
  Country: PE (occurrence: PE)
  Receive Date: 20140305
  Receipt Date: 20140819
  Transmission Date: 20150326
  Serious: Yes (Hospitalization)
  Sender: FDA-Public Use
  Company Number: PE-ROCHE-1358388

PATIENT
  Age: 8 Year
  Sex: Male

DRUGS (2)
  1. PULMOZYME [Suspect]
     Active Substance: DORNASE ALFA
     Indication: CYSTIC FIBROSIS
     Route: 048
     Dates: start: 201101
  2. PULMOZYME [Suspect]
     Active Substance: DORNASE ALFA
     Route: 048
     Dates: start: 20120108

REACTIONS (3)
  - Aspergillus infection [Recovering/Resolving]
  - Pseudomonas infection [Recovering/Resolving]
  - Productive cough [Not Recovered/Not Resolved]

NARRATIVE: CASE EVENT DATE: 20140225
